FAERS Safety Report 12079543 (Version 1)
Quarter: 2016Q1

REPORT INFORMATION
  Report Type: Spontaneous
  Country: US (occurrence: None)
  Receive Date: 20160212
  Receipt Date: 20160212
  Transmission Date: 20160526
  Serious: Yes (Disabling)
  Sender: FDA-Public Use
  Company Number: None

PATIENT
  Age: 55 Year
  Sex: Female
  Weight: 53.98 kg

DRUGS (8)
  1. JUVEDERM VOLUMA XC [Suspect]
     Active Substance: HYALURONIC ACID\LIDOCAINE HYDROCHLORIDE
     Indication: PRODUCT USED FOR UNKNOWN INDICATION
     Dosage: 4 VIALS, GIVEN INTO/UNDER THE SKIN
     Dates: start: 20150622, end: 20150622
  2. TRAMADOL. [Concomitant]
     Active Substance: TRAMADOL
  3. NEXIUM [Concomitant]
     Active Substance: ESOMEPRAZOLE MAGNESIUM
  4. METAMUCIL [Concomitant]
     Active Substance: PLANTAGO SEED
  5. BOTOX [Suspect]
     Active Substance: ONABOTULINUMTOXINA
     Dosage: 4 VIALS, GIVEN INTO./UNDER THE SKIN
  6. CALM 350 MG NATURAL VITALITY CFSAN [Suspect]
     Active Substance: DIETARY SUPPLEMENT
     Indication: MUSCLE SPASMS
     Dosage: 2 TSP
     Route: 048
     Dates: start: 20150712, end: 20150712
  7. LORAZEPAM. [Concomitant]
     Active Substance: LORAZEPAM
  8. MIRALAX [Concomitant]
     Active Substance: POLYETHYLENE GLYCOL 3350

REACTIONS (8)
  - Intervertebral disc protrusion [None]
  - Asthenia [None]
  - Impaired work ability [None]
  - Peroneal nerve palsy [None]
  - Hemiparesis [None]
  - Hypoaesthesia [None]
  - Toxicity to various agents [None]
  - Neuropathy peripheral [None]

NARRATIVE: CASE EVENT DATE: 20150713
